FAERS Safety Report 13885771 (Version 1)
Quarter: 2017Q3

REPORT INFORMATION
  Report Type: Report from Study
  Country: JP (occurrence: JP)
  Receive Date: 20170821
  Receipt Date: 20170821
  Transmission Date: 20171127
  Serious: Yes (Other)
  Sender: FDA-Public Use
  Company Number: JP-ASTELLAS-2017US032767

PATIENT

DRUGS (2)
  1. ERLOTINIB [Suspect]
     Active Substance: ERLOTINIB
     Indication: NON-SMALL CELL LUNG CANCER
     Dosage: 100 MG, ONCE DAILY (ON DAY 1-21)
     Route: 065
  2. AMRUBICIN [Suspect]
     Active Substance: AMRUBICIN
     Indication: NON-SMALL CELL LUNG CANCER
     Dosage: 35 MG/M2, UNKNOWN FREQ. (ON DAYS 1-3)
     Route: 042

REACTIONS (7)
  - Anaemia [Unknown]
  - Stomatitis [Unknown]
  - Decreased appetite [Unknown]
  - Leukopenia [Unknown]
  - Rash [Unknown]
  - Neutropenia [Unknown]
  - Febrile neutropenia [Unknown]
